FAERS Safety Report 5884235-7 (Version None)
Quarter: 2008Q3

REPORT INFORMATION
  Report Type: 
  Country: None (occurrence: None)
  Receive Date: 20080911
  Receipt Date: 20080902
  Transmission Date: 20090109
  Serious: Yes (Death, Hospitalization)
  Sender: FDA-Public Use
  Company Number: 2008AP001847

PATIENT
  Age: 79 Year
  Sex: Male

DRUGS (9)
  1. DESMOPRESSIN ACETATE [Suspect]
     Indication: DIABETES INSIPIDUS
     Dosage: 1 SPR; QD; 1 SPR; NAS-SPRAY, QD
     Route: 045
     Dates: start: 20061201, end: 20080728
  2. DESMOPRESSIN ACETATE [Suspect]
     Indication: DIABETES INSIPIDUS
     Dosage: 1 SPR; QD; 1 SPR; NAS-SPRAY, QD
     Route: 045
     Dates: start: 20061201
  3. PREDNISONE [Concomitant]
  4. RANITIDINE [Concomitant]
  5. LEVOTHYROXINE SODIUM [Concomitant]
  6. LORAZEPAM [Concomitant]
  7. FINASTERIDE [Concomitant]
  8. GALANTAMINE HYDROSROMIDE (GALANTAMINE HYDROBROMIDE) [Concomitant]
  9. INSULIN (INSULIN) [Concomitant]

REACTIONS (6)
  - ASPIRATION [None]
  - CENTRAL PONTINE MYELINOLYSIS [None]
  - CEREBROVASCULAR ACCIDENT [None]
  - DEPRESSED LEVEL OF CONSCIOUSNESS [None]
  - HYPERNATRAEMIA [None]
  - HYPONATRAEMIA [None]
